FAERS Safety Report 18509196 (Version 1)
Quarter: 2020Q4

REPORT INFORMATION
  Report Type: Spontaneous
  Country: RO (occurrence: RO)
  Receive Date: 20201117
  Receipt Date: 20201117
  Transmission Date: 20210114
  Serious: Yes (Death, Hospitalization, Other)
  Sender: FDA-Public Use
  Company Number: RO-SA-2018SA076391

PATIENT

DRUGS (4)
  1. MYCOPHENOLATE MOFETIL. [Suspect]
     Active Substance: MYCOPHENOLATE MOFETIL
     Indication: IMMUNOSUPPRESSANT DRUG THERAPY
     Dosage: UNK UNK,UNK
     Route: 065
  2. THYMOGLOBULIN [Suspect]
     Active Substance: LAPINE T-LYMPHOCYTE IMMUNE GLOBULIN
     Indication: IMMUNOSUPPRESSANT DRUG THERAPY
     Dosage: UNK UNK,UNK
     Route: 041
  3. METHYLPREDNISOLONE. [Suspect]
     Active Substance: METHYLPREDNISOLONE
     Indication: IMMUNOSUPPRESSANT DRUG THERAPY
     Dosage: UNK UNK,UNK
     Route: 065
  4. TACROLIMUS. [Suspect]
     Active Substance: TACROLIMUS
     Indication: IMMUNOSUPPRESSANT DRUG THERAPY
     Dosage: UNK UNK,UNK
     Route: 065

REACTIONS (25)
  - Pyrexia [Fatal]
  - Stomatitis [Fatal]
  - Lymphadenopathy [Fatal]
  - Post transplant lymphoproliferative disorder [Fatal]
  - Ascites [Fatal]
  - Salivary gland mass [Fatal]
  - Decreased appetite [Fatal]
  - Dysphagia [Fatal]
  - Anaemia [Fatal]
  - Retroperitoneal lymphadenopathy [Fatal]
  - Jaundice [Fatal]
  - Thymus enlargement [Fatal]
  - Leukopenia [Fatal]
  - Urinary tract infection [Fatal]
  - Dizziness [Fatal]
  - Hodgkin^s disease [Fatal]
  - Abdominal pain lower [Fatal]
  - Lymphopenia [Fatal]
  - Blood creatinine increased [Fatal]
  - Pericarditis [Fatal]
  - Hepatomegaly [Fatal]
  - Splenomegaly [Fatal]
  - Epstein-Barr virus infection [Fatal]
  - Asthenia [Fatal]
  - Pleurisy [Fatal]
